FAERS Safety Report 9559403 (Version 1)
Quarter: 2013Q3

REPORT INFORMATION
  Report Type: Spontaneous
  Country: US (occurrence: None)
  Receive Date: 20130906
  Receipt Date: 20130906
  Transmission Date: 20140515
  Serious: Yes (Other)
  Sender: FDA-Public Use
  Company Number: 163-POMAL-13071066

PATIENT
  Age: 76 Year
  Sex: Male

DRUGS (22)
  1. POMALYST [Suspect]
     Indication: PLASMA CELL MYELOMA
     Route: 048
     Dates: start: 20130331
  2. BACTRIM(BACTRIM)(UNKNOWN) [Concomitant]
  3. COMPLEX (BECOSYM FORTE) [Concomitant]
  4. CARENATE(OTHER THERAPEUTIC PRODUCTS)(UNKNOWN) [Concomitant]
  5. COQ10(UBIDECARENONE)(UNKNOWN) [Concomitant]
  6. DEXAMETHASONE(DEXAMETHASONE)(UNKNOWN) [Concomitant]
  7. FENTANYL(FENTANYL)(UNKNOWN) [Concomitant]
  8. FIBER(POLYCARBOPHIL CALCIUM)(UNKNOWN) [Concomitant]
  9. FINASTERIDE(FINASTERIDE)(UNKNOWN) [Concomitant]
  10. GABAPENTIN(GABAPENTIN)(UNKNOWN) [Concomitant]
  11. ISORSOBIDE(ISOSORBIDE)(UNKNOWN) [Concomitant]
  12. LISINOPRIL [Concomitant]
  13. MIRALAX(MACROGOL)(UNKNOWN) [Concomitant]
  14. OMEPRAZOLE(OMEPRAZOLE)(UNKNOWN) [Concomitant]
  15. PRADAXA(DABIGATRAN ETEXILATE MESILATE)(UNKNOWN) :1) UNK [Concomitant]
  16. PROBIATA(LACTOBACILLUS ACIDOPHILUS)(UNKNOWN) [Concomitant]
  17. SENNA(SENNA)(UNKNOWN) [Concomitant]
  18. SYNTHROID(LEVOTHYROXINE SODIUM)(UNKNOWN) [Concomitant]
  19. URSODIOL(URSODEOXYCHOLIC ACID)(UNKNOWN) [Concomitant]
  20. VICOPROFEN(VICOPROFEN)(UNKNOWN) [Concomitant]
  21. VITAMIN C(ASCORBIC ACID)(UNKNOWN) [Concomitant]
  22. FLOMAX (TAMSULOSIN HYDRODCHLORIDE) [Concomitant]

REACTIONS (2)
  - Dysgeusia [None]
  - Tooth fracture [None]
